APPROVED DRUG PRODUCT: PREGABALIN
Active Ingredient: PREGABALIN
Strength: 82.5MG
Dosage Form/Route: TABLET, EXTENDED RELEASE;ORAL
Application: A211948 | Product #001
Applicant: PHARMOBEDIENT CONSULTING LLC
Approved: Apr 13, 2021 | RLD: No | RS: No | Type: DISCN